FAERS Safety Report 5142069-5 (Version None)
Quarter: 2006Q4

REPORT INFORMATION
  Report Type: 
  Country: None (occurrence: None)
  Receive Date: 20061030
  Receipt Date: 20061030
  Transmission Date: 20070319
  Serious: Yes (Hospitalization)
  Sender: FDA-Public Use
  Company Number: None

PATIENT
  Sex: Female
  Weight: 47.7 kg

DRUGS (6)
  1. CETUXIMAB, 400MG/ M2, BRISTOL MEYERS SQUIBB [Suspect]
     Indication: CERVIX CARCINOMA
     Dosage: 580 MG CYCLE 1 DAY 1 IV
     Route: 042
     Dates: start: 20060928
  2. IBUPROFEN [Concomitant]
  3. VITAMIN B6 [Concomitant]
  4. OXYCODONE HCL [Concomitant]
  5. FAMOTIDINE [Concomitant]
  6. NENNA-S [Concomitant]

REACTIONS (1)
  - PYREXIA [None]
